FAERS Safety Report 25807626 (Version 2)
Quarter: 2025Q3

REPORT INFORMATION
  Report Type: Report from Study
  Country: US (occurrence: US)
  Receive Date: 20250916
  Receipt Date: 20250920
  Transmission Date: 20251021
  Serious: Yes (Other)
  Sender: AMGEN
  Company Number: US-AMGEN-USASL2025182025

PATIENT
  Age: 78 Year
  Sex: Female

DRUGS (1)
  1. PROLIA [Suspect]
     Active Substance: DENOSUMAB
     Indication: Bone loss
     Route: 065
     Dates: start: 202501, end: 20250728

REACTIONS (3)
  - Bone loss [Unknown]
  - Off label use [Unknown]
  - Tooth infection [Unknown]

NARRATIVE: CASE EVENT DATE: 20250101
